FAERS Safety Report 7693285-X (Version None)
Quarter: 2011Q3

REPORT INFORMATION
  Report Type: 
  Country: None (occurrence: None)
  Receive Date: 20110819
  Receipt Date: 20110816
  Transmission Date: 20111222
  Serious: Yes (Hospitalization, Disabling, Other)
  Sender: FDA-Public Use
  Company Number: PHHO2011US12521

PATIENT
  Sex: Female
  Weight: 95 kg

DRUGS (1)
  1. AFINITOR [Suspect]
     Indication: MALIGNANT NEOPLASM OF ISLETS OF LANGERHANS
     Dosage: 5 MG, UNK
     Route: 048
     Dates: start: 20070423, end: 20110709

REACTIONS (2)
  - DIARRHOEA [None]
  - MENTAL STATUS CHANGES [None]
